FAERS Safety Report 15688196 (Version 1)
Quarter: 2018Q4

REPORT INFORMATION
  Report Type: Report from Study
  Country: US (occurrence: US)
  Receive Date: 20181205
  Receipt Date: 20181205
  Transmission Date: 20190205
  Serious: Yes (Hospitalization)
  Sender: FDA-Public Use
  Company Number: US-EMD SERONO-9055549

PATIENT
  Age: 44 Year
  Sex: Female

DRUGS (1)
  1. REBIF [Suspect]
     Active Substance: INTERFERON BETA-1A
     Indication: MULTIPLE SCLEROSIS
     Route: 058
     Dates: start: 20180907

REACTIONS (7)
  - Pulmonary function test decreased [Unknown]
  - Emphysema [Unknown]
  - Asthma [Unknown]
  - Chronic obstructive pulmonary disease [Unknown]
  - Gait disturbance [Not Recovered/Not Resolved]
  - Tremor [Not Recovered/Not Resolved]
  - Injection site pain [Unknown]

NARRATIVE: CASE EVENT DATE: 2018
